FAERS Safety Report 14514250 (Version 2)
Quarter: 2018Q1

REPORT INFORMATION
  Report Type: Spontaneous
  Country: US (occurrence: US)
  Receive Date: 20180209
  Receipt Date: 20180305
  Transmission Date: 20180509
  Serious: No
  Sender: FDA-Public Use
  Company Number: US-BIOGEN-2018BI00510595

PATIENT
  Age: 15 Year
  Sex: Female

DRUGS (1)
  1. TYSABRI [Suspect]
     Active Substance: NATALIZUMAB
     Indication: MULTIPLE SCLEROSIS
     Dosage: INFUSED OVER 1 HOUR
     Route: 042
     Dates: start: 201701

REACTIONS (20)
  - Asthenia [Recovered/Resolved]
  - Nasal congestion [Recovered/Resolved]
  - Malaise [Recovered/Resolved]
  - Depression [Recovered/Resolved]
  - Eye pain [Recovered/Resolved]
  - Multiple sclerosis relapse [Recovered/Resolved]
  - Drug administered to patient of inappropriate age [Unknown]
  - Hallucination, auditory [Not Recovered/Not Resolved]
  - Dizziness [Recovered/Resolved]
  - Pain [Recovered/Resolved]
  - Pyrexia [Recovered/Resolved]
  - Headache [Recovered/Resolved]
  - Paraesthesia [Recovered/Resolved]
  - Influenza like illness [Recovered/Resolved]
  - Sinus disorder [Recovered/Resolved]
  - Dyspnoea [Recovered/Resolved]
  - Gait inability [Recovered/Resolved]
  - Fatigue [Recovered/Resolved]
  - Rhinorrhoea [Recovered/Resolved]
  - Hypoaesthesia [Recovered/Resolved]

NARRATIVE: CASE EVENT DATE: 201710
